FAERS Safety Report 12540305 (Version 1)
Quarter: 2016Q3

REPORT INFORMATION
  Report Type: Spontaneous
  Country: US (occurrence: US)
  Receive Date: 20160708
  Receipt Date: 20160708
  Transmission Date: 20161109
  Serious: No
  Sender: FDA-Public Use
  Company Number: US-DSJP-DSU-2015-125765

PATIENT

DRUGS (1)
  1. BENICAR HCT [Suspect]
     Active Substance: HYDROCHLOROTHIAZIDE\OLMESARTAN MEDOXOMIL
     Indication: HYPERTENSION
     Dosage: 20-12.5
     Dates: start: 2004, end: 2010

REACTIONS (3)
  - Alopecia [Unknown]
  - Malabsorption [Unknown]
  - Dizziness [Unknown]

NARRATIVE: CASE EVENT DATE: 2004
